FAERS Safety Report 25987121 (Version 2)
Quarter: 2025Q4

REPORT INFORMATION
  Report Type: Report from Study
  Country: CA (occurrence: CA)
  Receive Date: 20251103
  Receipt Date: 20251231
  Transmission Date: 20260118
  Serious: Yes (Other)
  Sender: ALEXION PHARMACEUTICALS
  Company Number: CA-AstraZeneca-CH-00975973A

PATIENT
  Age: 42 Year
  Sex: Female

DRUGS (9)
  1. RAVULIZUMAB [Suspect]
     Active Substance: RAVULIZUMAB
     Indication: Paroxysmal nocturnal haemoglobinuria
     Dosage: 2700 MG, 1 DOSE (LOADING DOSE)
  2. RAVULIZUMAB [Suspect]
     Active Substance: RAVULIZUMAB
     Dosage: 3300 MG 2 WEEKS AFTER LOADING DOSE
  3. RAVULIZUMAB [Suspect]
     Active Substance: RAVULIZUMAB
     Dosage: 3300 MILLIGRAM, Q8W (MAINTENANCE DOSE)
  4. RAVULIZUMAB [Suspect]
     Active Substance: RAVULIZUMAB
     Dosage: 3300 MILLIGRAM, Q8W (MAINTENANCE DOSE)
  5. CYCLOSPORINE [Concomitant]
     Active Substance: CYCLOSPORINE
     Dosage: 100 MILLIGRAM, QD
     Route: 061
  6. IVERMECTIN [Concomitant]
     Active Substance: IVERMECTIN
     Dosage: MICRODOSING
     Route: 061
  7. MIRENA [Concomitant]
     Active Substance: LEVONORGESTREL
     Dosage: UNK
     Route: 065
  8. EXJADE [Concomitant]
     Active Substance: DEFERASIROX
     Dosage: 500 MILLIGRAM, QW
     Route: 061
  9. Black seed oil [Concomitant]
     Dosage: UNK
     Route: 061

REACTIONS (17)
  - Haptoglobin decreased [Unknown]
  - Blood albumin increased [Unknown]
  - Alanine aminotransferase increased [Unknown]
  - Aspartate aminotransferase increased [Unknown]
  - Blood bilirubin unconjugated increased [Unknown]
  - Blood bilirubin increased [Unknown]
  - Blood lactate dehydrogenase increased [Unknown]
  - Red blood cell count decreased [Unknown]
  - Mean cell volume increased [Unknown]
  - Haematocrit decreased [Unknown]
  - Mean cell haemoglobin increased [Unknown]
  - Mean cell haemoglobin concentration increased [Unknown]
  - Mean platelet volume decreased [Unknown]
  - Platelet count decreased [Unknown]
  - Lymphocyte count decreased [Unknown]
  - Reticulocyte count increased [Unknown]
  - Haemoglobin E [Unknown]

NARRATIVE: CASE EVENT DATE: 20250121
